FAERS Safety Report 13673375 (Version 1)
Quarter: 2017Q2

REPORT INFORMATION
  Report Type: Spontaneous
  Country: US (occurrence: US)
  Receive Date: 20170621
  Receipt Date: 20170621
  Transmission Date: 20170830
  Serious: No
  Sender: FDA-Public Use
  Company Number: US-TEVA-694385USA

PATIENT
  Sex: Female
  Weight: 56.75 kg

DRUGS (1)
  1. ANASTROZOLE. [Suspect]
     Active Substance: ANASTROZOLE
     Indication: BREAST CANCER
     Dosage: 1 MILLIGRAM DAILY;
     Route: 065
     Dates: start: 2011

REACTIONS (2)
  - Nervous system disorder [Not Recovered/Not Resolved]
  - Pain [Not Recovered/Not Resolved]
